FAERS Safety Report 4717853-X (Version None)
Quarter: 2005Q3

REPORT INFORMATION
  Report Type: 
  Country: None (occurrence: None)
  Receive Date: 20050720
  Receipt Date: 20050708
  Transmission Date: 20060218
  Serious: Yes (Death, Life-Threatening, Hospitalization)
  Sender: FDA-Public Use
  Company Number: JP-JNJFOC-20050702048

PATIENT
  Sex: Female
  Weight: 65 kg

DRUGS (14)
  1. REMICADE [Suspect]
     Route: 042
  2. REMICADE [Suspect]
     Indication: RHEUMATOID ARTHRITIS
     Route: 042
  3. METHOTREXATE [Suspect]
     Route: 048
     Dates: start: 20020822, end: 20050620
  4. METHOTREXATE [Suspect]
     Route: 048
     Dates: start: 20020822, end: 20050620
  5. METHOTREXATE [Suspect]
     Route: 048
     Dates: start: 20020822, end: 20050620
  6. METHOTREXATE [Suspect]
     Indication: RHEUMATOID ARTHRITIS
     Route: 048
     Dates: start: 20020822, end: 20050620
  7. ISONIAZID [Concomitant]
     Indication: TUBERCULOSIS PROPHYLAXIS
     Route: 048
     Dates: start: 20050420, end: 20050704
  8. ADRENAL HORMONE PREPARATIONS [Concomitant]
     Indication: RHEUMATOID ARTHRITIS
     Route: 048
  9. PREDONINE [Concomitant]
     Indication: RHEUMATOID ARTHRITIS
     Route: 048
  10. GASTER D [Concomitant]
     Route: 048
  11. DIOVAN [Concomitant]
     Route: 048
  12. MUCOSTA [Concomitant]
     Route: 048
  13. CONIEL [Concomitant]
     Route: 048
  14. NOVOLIN 30R [Concomitant]
     Route: 058

REACTIONS (3)
  - DEHYDRATION [None]
  - DIARRHOEA [None]
  - RENAL FAILURE ACUTE [None]
